FAERS Safety Report 10483165 (Version 2)
Quarter: 2014Q3

REPORT INFORMATION
  Report Type: Report from Study
  Country: US (occurrence: US)
  Receive Date: 20140930
  Receipt Date: 20140930
  Transmission Date: 20150326
  Serious: Yes (Other)
  Sender: FDA-Public Use
  Company Number: US-ROCHE-GNE301188

PATIENT
  Age: 12 Year
  Sex: Male
  Weight: 62.6 kg

DRUGS (8)
  1. NUTROPIN AQ [Suspect]
     Active Substance: SOMATROPIN
     Route: 058
  2. CLONIDINE. [Concomitant]
     Active Substance: CLONIDINE
     Route: 048
  3. NORDITROPIN [Concomitant]
     Active Substance: SOMATROPIN
  4. NUTROPIN AQ [Suspect]
     Active Substance: SOMATROPIN
     Indication: GROWTH HORMONE DEFICIENCY
     Dosage: 1.4 MG, QD
     Route: 058
     Dates: start: 200609, end: 20100421
  5. ARGININE [Concomitant]
     Active Substance: ARGININE
     Route: 065
  6. ARIMIDEX [Concomitant]
     Active Substance: ANASTROZOLE
     Route: 048
  7. NUTROPIN AQ [Suspect]
     Active Substance: SOMATROPIN
     Route: 058
  8. GLUCOPHAGE [Concomitant]
     Active Substance: METFORMIN HYDROCHLORIDE
     Route: 048

REACTIONS (6)
  - Scar [Unknown]
  - Weight increased [Unknown]
  - Growth retardation [Unknown]
  - Blood glucose increased [Unknown]
  - Osteochondrosis [Not Recovered/Not Resolved]
  - Periarthritis [Unknown]

NARRATIVE: CASE EVENT DATE: 201004
